FAERS Safety Report 5948195-2 (Version None)
Quarter: 2008Q4

REPORT INFORMATION
  Report Type: 
  Country: None (occurrence: None)
  Receive Date: 20081111
  Receipt Date: 20081030
  Transmission Date: 20090506
  Serious: Yes (Hospitalization)
  Sender: FDA-Public Use
  Company Number: DE-AMGEN-US317999

PATIENT
  Sex: Female

DRUGS (1)
  1. ENBREL [Suspect]
     Indication: RHEUMATOID ARTHRITIS
     Dosage: UNKNOWN
     Route: 058
     Dates: start: 20050301

REACTIONS (5)
  - COUGH [None]
  - DYSPHONIA [None]
  - DYSPNOEA [None]
  - LUNG DISORDER [None]
  - THROAT TIGHTNESS [None]
